FAERS Safety Report 11722745 (Version 2)
Quarter: 2015Q4

REPORT INFORMATION
  Report Type: Spontaneous
  Country: US (occurrence: US)
  Receive Date: 20151111
  Receipt Date: 20151112
  Transmission Date: 20160304
  Serious: Yes (Other)
  Sender: FDA-Public Use
  Company Number: US-RECKITT BENCKISER HEALTHCARE INT LIMITED-RB-09048-2015

PATIENT
  Age: 31 Year
  Sex: Female

DRUGS (4)
  1. MUCINEX FAST-MAX SEVERE CONGESTION AND COUGH [Suspect]
     Active Substance: DEXTROMETHORPHAN HYDROBROMIDE\GUAIFENESIN\PHENYLEPHRINE HYDROCHLORIDE
     Indication: SALIVARY HYPERSECRETION
     Dosage: 2 DF, QD
     Route: 065
     Dates: start: 20151023, end: 20151025
  2. COMPAZINE [Interacting]
     Active Substance: PROCHLORPERAZINE MALEATE
     Indication: NAUSEA
     Dosage: UNK
     Route: 065
  3. PHENERGAN [Interacting]
     Active Substance: PROMETHAZINE HYDROCHLORIDE
     Indication: NAUSEA
     Dosage: UNK
     Route: 065
  4. PEPCID [Interacting]
     Active Substance: FAMOTIDINE
     Indication: NAUSEA
     Dosage: UNK
     Route: 065

REACTIONS (8)
  - Tremor [Recovering/Resolving]
  - Tremor [None]
  - Energy increased [Unknown]
  - Exposure during pregnancy [Unknown]
  - Insomnia [Unknown]
  - Vision blurred [Recovered/Resolved]
  - Drug interaction [Unknown]
  - Neurological symptom [Unknown]

NARRATIVE: CASE EVENT DATE: 201510
